FAERS Safety Report 8601762-X (Version None)
Quarter: 2012Q3

REPORT INFORMATION
  Report Type: 
  Country: None (occurrence: None)
  Receive Date: 20120817
  Receipt Date: 20120515
  Transmission Date: 20120928
  Serious: Yes (Hospitalization)
  Sender: FDA-Public Use
  Company Number: US-BRISTOL-MYERS SQUIBB COMPANY-16462970

PATIENT
  Age: 58 Year
  Sex: Male
  Weight: 109 kg

DRUGS (8)
  1. LASIX [Concomitant]
  2. WARFARIN SODIUM [Concomitant]
  3. METOPROLOL TARTRATE [Concomitant]
  4. ASPIRIN [Concomitant]
  5. BENADRYL [Concomitant]
  6. SPRYCEL [Suspect]
     Indication: CHRONIC MYELOID LEUKAEMIA
     Dosage: 1DF= 100, UNITS NOS. SLIGHTLY OVER 1 YEAR
  7. ALLOPURINOL [Concomitant]
  8. PRAVASTATIN SODIUM [Concomitant]

REACTIONS (6)
  - CARDIAC FAILURE CONGESTIVE [None]
  - DYSARTHRIA [None]
  - MEMORY IMPAIRMENT [None]
  - WEIGHT FLUCTUATION [None]
  - FLUID RETENTION [None]
  - DYSPNOEA [None]
